FAERS Safety Report 23663890 (Version 1)
Quarter: 2024Q1

REPORT INFORMATION
  Report Type: Spontaneous
  Country: KR (occurrence: KR)
  Receive Date: 20240322
  Receipt Date: 20240322
  Transmission Date: 20240410
  Serious: Yes (Hospitalization)
  Sender: FDA-Public Use
  Company Number: KR-JNJFOC-20240345197

PATIENT
  Sex: Female

DRUGS (10)
  1. RISPERDAL [Suspect]
     Active Substance: RISPERIDONE
     Indication: Product used for unknown indication
     Route: 065
     Dates: start: 20100810, end: 20110609
  2. RISPERDAL [Suspect]
     Active Substance: RISPERIDONE
     Route: 065
     Dates: start: 20110707, end: 20160225
  3. RISPERDAL [Suspect]
     Active Substance: RISPERIDONE
     Route: 065
     Dates: start: 20160427, end: 20221102
  4. RISPERDAL [Suspect]
     Active Substance: RISPERIDONE
     Route: 065
     Dates: start: 20221103, end: 20230104
  5. HALDOL [Suspect]
     Active Substance: HALOPERIDOL
     Indication: Product used for unknown indication
     Route: 065
     Dates: start: 20110707, end: 20160225
  6. PROCYCLIDINE [Suspect]
     Active Substance: PROCYCLIDINE
     Indication: Product used for unknown indication
     Route: 065
     Dates: start: 20100810, end: 20110609
  7. PROCYCLIDINE [Suspect]
     Active Substance: PROCYCLIDINE
     Route: 065
     Dates: start: 20110707, end: 20160225
  8. VALPROATE [Suspect]
     Active Substance: VALPROIC ACID
     Indication: Product used for unknown indication
     Route: 065
     Dates: start: 20160427, end: 20221102
  9. BENZTROPINE [Suspect]
     Active Substance: BENZTROPINE
     Indication: Product used for unknown indication
     Route: 065
     Dates: start: 20160427, end: 20221102
  10. BENZTROPINE [Suspect]
     Active Substance: BENZTROPINE
     Route: 065
     Dates: start: 20221103, end: 20230104

REACTIONS (4)
  - Emotional disorder [Unknown]
  - Impulsive behaviour [Unknown]
  - Aggression [Unknown]
  - Treatment noncompliance [Unknown]
